FAERS Safety Report 9633189 (Version 2)
Quarter: 2013Q4

REPORT INFORMATION
  Report Type: Report from Study
  Country: VE (occurrence: VE)
  Receive Date: 20131020
  Receipt Date: 20131020
  Transmission Date: 20140711
  Serious: Yes (Hospitalization, Other)
  Sender: FDA-Public Use
  Company Number: PHHY2013VE088115

PATIENT
  Age: 67 Year
  Sex: Female

DRUGS (2)
  1. ACLASTA [Suspect]
     Indication: OSTEOPOROSIS
     Dosage: 5 MG, ANNUALLY
     Route: 042
     Dates: start: 20121009
  2. CITRAGEL [Concomitant]
     Dosage: UNK

REACTIONS (4)
  - Vomiting [Recovered/Resolved]
  - Headache [Recovered/Resolved]
  - Rotator cuff syndrome [Recovered/Resolved]
  - Pain [Recovered/Resolved]
